FAERS Safety Report 9123661 (Version 4)
Quarter: 2013Q4

REPORT INFORMATION
  Report Type: Report from Study
  Country: PL (occurrence: PL)
  Receive Date: 20130227
  Receipt Date: 20131128
  Transmission Date: 20140711
  Serious: Yes (Hospitalization)
  Sender: FDA-Public Use
  Company Number: PL-CELGENEUS-129-21880-12101267

PATIENT
  Age: 66 Year
  Sex: Male
  Weight: 98 kg

DRUGS (38)
  1. REVLIMID [Suspect]
     Indication: PLASMA CELL MYELOMA
     Dosage: 25 MILLIGRAM
     Route: 048
     Dates: start: 20110816, end: 20110905
  2. REVLIMID [Suspect]
     Dosage: 25 MILLIGRAM
     Route: 048
     Dates: start: 20120814, end: 20120903
  3. REVLIMID [Suspect]
     Dosage: 25 MILLIGRAM
     Route: 048
     Dates: start: 20121009, end: 20121029
  4. REVLIMID [Suspect]
     Dosage: 15 MILLIGRAM
     Route: 048
     Dates: start: 20130226, end: 20130318
  5. REVLIMID [Suspect]
     Dosage: 15 MILLIGRAM
     Route: 048
     Dates: start: 20130326, end: 20130415
  6. REVLIMID [Suspect]
     Dosage: 15 MILLIGRAM
     Route: 048
     Dates: start: 20130423, end: 20130513
  7. CARFILZOMIB [Suspect]
     Indication: PLASMA CELL MYELOMA
     Dosage: 42 MILLIGRAM
     Route: 065
     Dates: start: 20110816, end: 20110817
  8. CARFILZOMIB [Suspect]
     Dosage: 56.7 MILLIGRAM
     Route: 065
     Dates: start: 20110823, end: 20110831
  9. CARFILZOMIB [Suspect]
     Dosage: 56.7 MILLIGRAM
     Route: 065
     Dates: start: 20111011, end: 20111012
  10. CARFILZOMIB [Suspect]
     Dosage: 59.4 MILLIGRAM
     Route: 065
     Dates: start: 20120814, end: 20120829
  11. CARFILZOMIB [Suspect]
     Dosage: 59.4 MILLIGRAM
     Route: 065
     Dates: start: 20121023, end: 20121121
  12. CARFILZOMIB [Suspect]
     Dosage: 59.4 MILLIGRAM
     Route: 065
     Dates: start: 20111018, end: 20111026
  13. CARFILZOMIB [Suspect]
     Route: 065
     Dates: end: 20121121
  14. DEXAMETHASONE [Suspect]
     Indication: PLASMA CELL MYELOMA
     Route: 065
     Dates: start: 20110816, end: 20110906
  15. DEXAMETHASONE [Suspect]
     Route: 065
     Dates: start: 20111108, end: 20111115
  16. DEXAMETHASONE [Suspect]
     Route: 065
     Dates: start: 20120814, end: 20120904
  17. DEXAMETHASONE [Suspect]
     Route: 065
     Dates: start: 20111122, end: 20111129
  18. DEXAMETHASONE [Suspect]
     Route: 065
     Dates: start: 20120911, end: 20121016
  19. DEXAMETHASONE [Suspect]
     Dosage: 20 MILLIGRAM
     Route: 065
     Dates: start: 20130326, end: 20130416
  20. DEXAMETHASONE [Suspect]
     Dosage: 20 MILLIGRAM
     Route: 065
     Dates: start: 20130423, end: 20130514
  21. ACICLOVIR [Concomitant]
     Indication: ANTIVIRAL PROPHYLAXIS
     Dosage: 800 MILLIGRAM
     Route: 048
     Dates: start: 20110815
  22. ACIDUM ACETYLSALICYLICUM [Concomitant]
     Indication: ANTICOAGULANT THERAPY
     Dosage: 100 MILLIGRAM
     Route: 048
     Dates: start: 2004, end: 20110814
  23. ACIDUM ACETYLSALICYLICUM [Concomitant]
     Indication: MYOCARDIAL ISCHAEMIA
     Dosage: 100 MILLIGRAM
     Route: 048
     Dates: start: 20110815
  24. ALFACALCIDOL [Concomitant]
     Indication: HYPOPHOSPHATAEMIA
     Dosage: .25 MILLIGRAM
     Route: 048
     Dates: start: 20110830
  25. ALLOPURINOLUM [Concomitant]
     Indication: PROPHYLAXIS
     Dosage: 200 MILLIGRAM
     Route: 048
     Dates: start: 20080209
  26. AMLODIPINE [Concomitant]
     Indication: HYPERTENSION
     Dosage: 10 MILLIGRAM
     Route: 048
     Dates: start: 20080209
  27. ATORVASTATIN [Concomitant]
     Indication: MYOCARDIAL ISCHAEMIA
     Dosage: 20 MILLIGRAM
     Route: 048
     Dates: start: 20080209
  28. CALCIUM LACTOGLUCONATE [Concomitant]
     Indication: PROPHYLAXIS
     Dosage: 1000 MILLIGRAM
     Route: 048
     Dates: start: 20110913
  29. POTASSIUM CHLORIDE [Concomitant]
     Indication: PROPHYLAXIS
     Dosage: 782 MILLIGRAM
     Route: 048
     Dates: start: 20081211
  30. LANSOPRAZOLE [Concomitant]
     Indication: PRODUCT USED FOR UNKNOWN INDICATION
     Dosage: 15 MILLIGRAM
     Route: 048
     Dates: start: 20110815
  31. METOPROLOL [Concomitant]
     Indication: HYPERTENSION
     Dosage: 100 MILLIGRAM
     Route: 048
     Dates: start: 20080209
  32. PAMIFOS [Concomitant]
     Indication: PLASMA CELL MYELOMA
     Route: 041
     Dates: start: 20110815
  33. RAMIPRIL [Concomitant]
     Indication: HYPERTENSION
     Dosage: 5 MILLIGRAM
     Route: 048
     Dates: start: 20080209
  34. FLUKONAZOL [Concomitant]
     Indication: RESPIRATORY TRACT INFECTION
     Dosage: 100 MILLIGRAM
     Route: 048
     Dates: start: 20111213, end: 20111227
  35. FLUKONAZOL [Concomitant]
     Indication: PNEUMONIA
     Dosage: 100 MILLIGRAM
     Route: 048
     Dates: start: 20120214, end: 20120221
  36. FLUKONAZOL [Concomitant]
     Dosage: 100 MILLIGRAM
     Route: 048
     Dates: start: 20120424, end: 20120507
  37. FLUKONAZOL [Concomitant]
     Dosage: 100 MILLIGRAM
     Route: 048
     Dates: start: 20121004, end: 20121019
  38. CIPROFLOXACIN [Concomitant]
     Indication: ANTIBIOTIC PROPHYLAXIS
     Dosage: 500 MILLIGRAM
     Route: 048
     Dates: start: 20110815, end: 20110912

REACTIONS (6)
  - Respiratory tract infection [Recovered/Resolved]
  - Pancreatitis acute [Recovered/Resolved with Sequelae]
  - Clostridium difficile colitis [Recovered/Resolved]
  - Benign pancreatic neoplasm [Recovered/Resolved]
  - Papilla of Vater stenosis [Recovered/Resolved]
  - Aortic aneurysm [Recovered/Resolved]
